FAERS Safety Report 21164533 (Version 2)
Quarter: 2022Q3

REPORT INFORMATION
  Report Type: Spontaneous
  Country: US (occurrence: US)
  Receive Date: 20220803
  Receipt Date: 20220812
  Transmission Date: 20221027
  Serious: Yes (Other)
  Sender: FDA-Public Use
  Company Number: US-MLMSERVICE-20220714-3671919-1

PATIENT
  Age: 73 Year
  Sex: Male

DRUGS (2)
  1. DEXAMETHASONE [Suspect]
     Active Substance: DEXAMETHASONE
     Indication: COVID-19 pneumonia
     Dosage: 6 MILLIGRAM, TWO TIMES A DAY
     Route: 042
  2. OXYGEN [Concomitant]
     Active Substance: OXYGEN
     Indication: COVID-19 pneumonia
     Dosage: SUPPLEMENTAL OXYGEN VIA NASAL CANNULA
     Route: 045

REACTIONS (6)
  - Arthritis reactive [Recovered/Resolved]
  - Aspergillus infection [Recovered/Resolved]
  - Pneumonia fungal [Recovered/Resolved]
  - Candida infection [Recovered/Resolved]
  - Emphysema [Recovered/Resolved]
  - Off label use [Unknown]
